FAERS Safety Report 17856166 (Version 1)
Quarter: 2020Q2

REPORT INFORMATION
  Report Type: Spontaneous
  Country: PT (occurrence: PT)
  Receive Date: 20200603
  Receipt Date: 20200603
  Transmission Date: 20200714
  Serious: No
  Sender: FDA-Public Use
  Company Number: PT-TOLMAR, INC.-19PT000005

PATIENT
  Age: 86 Year
  Sex: Male

DRUGS (2)
  1. ELIGARD [Suspect]
     Active Substance: LEUPROLIDE ACETATE
     Dosage: 22.5 MG EVERY 3 MONTHS
     Route: 058
  2. ELIGARD [Suspect]
     Active Substance: LEUPROLIDE ACETATE
     Indication: PROSTATE CANCER
     Dosage: 22.5 MG EVERY 3 MONTHS
     Route: 058
     Dates: start: 2014

REACTIONS (3)
  - Wrong technique in product usage process [None]
  - Intercepted product preparation error [None]
  - Product leakage [None]

NARRATIVE: CASE EVENT DATE: 20190730
